FAERS Safety Report 9373783 (Version 1)
Quarter: 2013Q2

REPORT INFORMATION
  Report Type: Spontaneous
  Country: CA (occurrence: CA)
  Receive Date: 20130628
  Receipt Date: 20130628
  Transmission Date: 20140414
  Serious: Yes (Hospitalization)
  Sender: FDA-Public Use
  Company Number: CA-ROCHE-1242432

PATIENT
  Age: 69 Year
  Sex: Female
  Weight: 62 kg

DRUGS (5)
  1. XELODA [Suspect]
     Indication: PRODUCT USED FOR UNKNOWN INDICATION
     Route: 048
  2. APO-PROCHLORAZINE [Concomitant]
     Route: 065
  3. ONDANSETRON [Concomitant]
     Route: 065
  4. SYNTHROID [Concomitant]
     Route: 065
  5. VITAMIN B12 [Concomitant]
     Route: 051

REACTIONS (2)
  - Pruritus [Recovered/Resolved]
  - Skin hypertrophy [Recovered/Resolved]
